FAERS Safety Report 4957174-3 (Version None)
Quarter: 2006Q1

REPORT INFORMATION
  Report Type: 
  Country: None (occurrence: None)
  Receive Date: 20060323
  Receipt Date: 20060314
  Transmission Date: 20060701
  Serious: Yes (Death, Hospitalization, Other)
  Sender: FDA-Public Use
  Company Number: US200603003484

PATIENT
  Age: 79 Year
  Sex: Female

DRUGS (4)
  1. ZYPREXA [Suspect]
  2. PROZAC [Concomitant]
  3. OXYCONTIN [Concomitant]
  4. METHADONE HCL [Concomitant]

REACTIONS (11)
  - ACCIDENTAL OVERDOSE [None]
  - CONFUSIONAL STATE [None]
  - ELECTROCARDIOGRAM QT PROLONGED [None]
  - ELECTROENCEPHALOGRAM ABNORMAL [None]
  - FATIGUE [None]
  - HEART RATE DECREASED [None]
  - LETHARGY [None]
  - PNEUMONIA [None]
  - PRESCRIBED OVERDOSE [None]
  - RESPIRATORY ARREST [None]
  - VOMITING [None]
